FAERS Safety Report 11858082 (Version 3)
Quarter: 2016Q1

REPORT INFORMATION
  Report Type: Spontaneous
  Country: JP (occurrence: JP)
  Receive Date: 20151222
  Receipt Date: 20160204
  Transmission Date: 20160526
  Serious: Yes (Other)
  Sender: FDA-Public Use
  Company Number: JP-TEVA-616849ISR

PATIENT
  Age: 77 Year
  Sex: Female

DRUGS (9)
  1. BAYASPIRIN [Concomitant]
     Active Substance: ASPIRIN
     Dates: start: 20151111, end: 2015
  2. DOGMATYL [Suspect]
     Active Substance: SULPIRIDE
     Dosage: 150 MILLIGRAM DAILY;
     Route: 048
     Dates: start: 20151028, end: 20151113
  3. WARFARIN [Concomitant]
     Active Substance: WARFARIN
     Dates: start: 20150925, end: 2015
  4. TRISENOX [Suspect]
     Active Substance: ARSENIC TRIOXIDE
     Dosage: 16MG/WEEK, TOTAL DOSE 8MG
     Route: 041
     Dates: start: 20151024, end: 20151101
  5. HEPARIN CALCIUM [Concomitant]
     Active Substance: HEPARIN CALCIUM
     Dates: start: 20150924, end: 2015
  6. TRISENOX [Suspect]
     Active Substance: ARSENIC TRIOXIDE
     Dosage: 24MG/WEEK, TOTAL DOSE 8MG
     Route: 041
     Dates: start: 20151102, end: 20151113
  7. BISONO [Concomitant]
     Active Substance: BISOPROLOL
     Dates: start: 20151107, end: 2015
  8. TRISENOX [Suspect]
     Active Substance: ARSENIC TRIOXIDE
     Dosage: 10MG/WEEK, TOTAL DOSE 5MG
     Route: 041
     Dates: start: 20150831, end: 20150913
  9. TRISENOX [Suspect]
     Active Substance: ARSENIC TRIOXIDE
     Dosage: 16MG/WEEK, TOTAL DOSE 8MG
     Route: 041
     Dates: start: 20150914, end: 20150924

REACTIONS (4)
  - Somnolence [Recovered/Resolved]
  - Decreased appetite [Recovered/Resolved]
  - Venous thrombosis [Recovered/Resolved]
  - Deafness [Unknown]

NARRATIVE: CASE EVENT DATE: 20150924
